FAERS Safety Report 9127068 (Version 2)
Quarter: 2013Q1

REPORT INFORMATION
  Report Type: Spontaneous
  Country: JP (occurrence: JP)
  Receive Date: 20130228
  Receipt Date: 20130307
  Transmission Date: 20140127
  Serious: Yes (Death, Other)
  Sender: FDA-Public Use
  Company Number: PHHY2013JP019436

PATIENT
  Age: 81 Year
  Sex: Male
  Weight: 73.5 kg

DRUGS (1)
  1. ZOLEDRONIC ACID [Suspect]
     Indication: PLASMA CELL MYELOMA
     Dosage: UNK
     Route: 041

REACTIONS (5)
  - Cholangitis [Fatal]
  - Pancreatitis [Fatal]
  - Renal failure [Not Recovered/Not Resolved]
  - Bile duct stone [Unknown]
  - Haemorrhage [Unknown]
